FAERS Safety Report 14122502 (Version 1)
Quarter: 2017Q4

REPORT INFORMATION
  Report Type: Spontaneous
  Country: US (occurrence: None)
  Receive Date: 20171024
  Receipt Date: 20171024
  Transmission Date: 20180321
  Serious: No
  Sender: FDA-Public Use
  Company Number: None

PATIENT
  Age: 10 Year
  Sex: Male
  Weight: 38.1 kg

DRUGS (8)
  1. PROBOTICS [Concomitant]
  2. ALINIA (NITAZOXANIDE) ORAL SUSPENSION 100MG/5M L [Suspect]
     Active Substance: NITAZOXANIDE
     Indication: ABDOMINAL PAIN UPPER
     Route: 048
     Dates: start: 20170804, end: 20170807
  3. 1 A DAY VITIMINS [Concomitant]
  4. PEPCID [Concomitant]
     Active Substance: FAMOTIDINE
  5. MIRALAX [Concomitant]
     Active Substance: POLYETHYLENE GLYCOL 3350
  6. ALINIA (NITAZOXANIDE) ORAL SUSPENSION 100MG/5M L [Suspect]
     Active Substance: NITAZOXANIDE
     Indication: DIARRHOEA
     Route: 048
     Dates: start: 20170804, end: 20170807
  7. ZYRTEC [Concomitant]
     Active Substance: CETIRIZINE HYDROCHLORIDE
  8. GUMMIES CHILDRENS VITAMINS [Concomitant]

REACTIONS (3)
  - Hypoacusis [None]
  - Hypersensitivity [None]
  - Serum sickness [None]

NARRATIVE: CASE EVENT DATE: 20170808
